FAERS Safety Report 7216231-1 (Version None)
Quarter: 2011Q1

REPORT INFORMATION
  Report Type: 
  Country: None (occurrence: None)
  Receive Date: 20110107
  Receipt Date: 20101228
  Transmission Date: 20110831
  Serious: Yes (Disabling, Other)
  Sender: FDA-Public Use
  Company Number: PHHY2010US71382

PATIENT
  Sex: Female
  Weight: 66 kg

DRUGS (20)
  1. ROBITUSSIN [Concomitant]
  2. ATENOLOL [Concomitant]
     Dosage: 100 MG
     Route: 048
  3. MYLANTA [Concomitant]
     Dosage: 30 ML
  4. NITROSTAT [Concomitant]
     Dosage: 0.4 MG
     Route: 060
  5. COZAAR [Concomitant]
     Dosage: 50 MG
     Route: 048
  6. FLONASE [Suspect]
     Dosage: 50 MCG
  7. NORVASC [Concomitant]
     Dosage: 5 MG
     Route: 048
  8. GLEEVEC [Suspect]
     Dosage: 300 MG, QD
     Route: 048
     Dates: start: 20010101
  9. SYNTHROID [Concomitant]
     Dosage: 75 MCG
     Route: 048
  10. ALLEGRA [Concomitant]
     Dosage: 180 MG
  11. GLEEVEC [Suspect]
     Dosage: 200 MG
     Route: 048
  12. MACRODANTIN [Concomitant]
     Dosage: 50 MG
     Route: 048
  13. OS-CAL [Concomitant]
     Route: 048
  14. PEPCID [Concomitant]
     Dosage: 20 MG
     Route: 048
  15. ADVIL [Concomitant]
     Indication: PAIN
     Dosage: 200 MG
  16. CENTRUM SILVER [Concomitant]
     Dosage: 1 TABLET DAILY
     Route: 048
  17. ASPIRIN [Concomitant]
     Dosage: 325 MG
     Route: 048
  18. NORTRIPTYLINE HYDROCHLORIDE [Suspect]
     Dosage: 25 MG
     Route: 048
  19. LOVAZA [Concomitant]
     Dosage: 1000 MG
     Route: 048
  20. LACTAID [Concomitant]
     Dosage: 9000 UNIT

REACTIONS (3)
  - RETINAL VEIN OCCLUSION [None]
  - RETINAL VEIN THROMBOSIS [None]
  - VISION BLURRED [None]
